FAERS Safety Report 22194958 (Version 1)
Quarter: 2023Q2

REPORT INFORMATION
  Report Type: Spontaneous
  Country: BR (occurrence: BR)
  Receive Date: 20230411
  Receipt Date: 20230411
  Transmission Date: 20230721
  Serious: Yes (Hospitalization)
  Sender: FDA-Public Use
  Company Number: BR-NOVOPROD-987673

PATIENT
  Age: 75 Year
  Sex: Female
  Weight: 65 kg

DRUGS (12)
  1. XULTOPHY 100/3.6 [Suspect]
     Active Substance: INSULIN DEGLUDEC\LIRAGLUTIDE
     Indication: Decreased appetite
     Dosage: INCREASED BY 1 MORE, UNTIL REACHING 50U
     Dates: end: 202103
  2. XULTOPHY 100/3.6 [Suspect]
     Active Substance: INSULIN DEGLUDEC\LIRAGLUTIDE
     Indication: Type 2 diabetes mellitus
     Dosage: 15 IU FOR 3 DAYS
     Dates: start: 20210111
  3. GLUCOPHAGE XR [Concomitant]
     Active Substance: METFORMIN HYDROCHLORIDE
     Indication: Type 2 diabetes mellitus
     Dosage: 2 G, QD (4 TABLETS/DAY)
     Route: 048
     Dates: start: 2008
  4. VILDAGLIPTIN [Concomitant]
     Active Substance: VILDAGLIPTIN
     Indication: Type 2 diabetes mellitus
     Dosage: 100 MG, QD (2 TABLETS OF 50 MG/QD)
     Route: 048
     Dates: start: 2008
  5. LOSARTAN [Concomitant]
     Active Substance: LOSARTAN
     Dosage: 25 MG, QD
  6. LOSARTAN [Concomitant]
     Active Substance: LOSARTAN
     Indication: Hypertension
     Dosage: 100 MG, QD
     Route: 048
     Dates: start: 2008
  7. AMLODIPINE BESYLATE [Concomitant]
     Active Substance: AMLODIPINE BESYLATE
     Dosage: 2.5 MG, QD
     Route: 048
  8. AMLODIPINE BESYLATE [Concomitant]
     Active Substance: AMLODIPINE BESYLATE
     Indication: Hypertension
     Dosage: 5 MG, QD
     Route: 048
     Dates: start: 2008
  9. OSTEONUTRI [Concomitant]
     Indication: Supplementation therapy
     Dosage: 2 TABLETS/QD
  10. ROSUVASTATIN [Concomitant]
     Active Substance: ROSUVASTATIN
     Indication: Blood cholesterol abnormal
     Dosage: 20 MG, QD
     Route: 048
  11. ASPIRIN [Concomitant]
     Active Substance: ASPIRIN
     Indication: Anticoagulant therapy
     Dosage: 100 MG, QD
     Route: 048
     Dates: end: 202106
  12. NOREPINEPHRINE [Concomitant]
     Active Substance: NOREPINEPHRINE
     Indication: Hypertension
     Dosage: UNK

REACTIONS (7)
  - Phobia [Recovered/Resolved]
  - Inflammation [Recovered/Resolved]
  - Renal disorder [Recovered/Resolved]
  - Decreased appetite [Recovered/Resolved]
  - Constipation [Recovered/Resolved]
  - Dehydration [Recovered/Resolved]
  - Hypoglycaemia [Recovered/Resolved]

NARRATIVE: CASE EVENT DATE: 20210101
